FAERS Safety Report 14673561 (Version 4)
Quarter: 2018Q2

REPORT INFORMATION
  Report Type: Report from Study
  Country: EC (occurrence: EC)
  Receive Date: 20180323
  Receipt Date: 20180503
  Transmission Date: 20180711
  Serious: Yes (Other)
  Sender: FDA-Public Use
  Company Number: PHHY2018EC049080

PATIENT
  Sex: Female

DRUGS (10)
  1. METFORMIN HYDROCHLORIDE. [Suspect]
     Active Substance: METFORMIN HYDROCHLORIDE
     Indication: GLUCOSE TOLERANCE IMPAIRED
     Dosage: 1 DF, QD (BEFORE LUNCH)
     Route: 065
     Dates: start: 201712
  2. TIROXIN [Concomitant]
     Indication: NODULE
     Dosage: 100 UG, UNK
     Route: 065
     Dates: start: 201708
  3. TIROXIN [Concomitant]
     Dosage: 125 UG, UNK
     Route: 065
  4. TASIGNA [Suspect]
     Active Substance: NILOTINIB
     Indication: CHRONIC MYELOID LEUKAEMIA
     Dosage: UNK
     Route: 065
  5. IMATINIB [Suspect]
     Active Substance: IMATINIB
     Indication: CHRONIC MYELOID LEUKAEMIA
     Dosage: UNK
     Route: 065
     Dates: start: 200607, end: 201107
  6. TIROXIN [Concomitant]
     Dosage: 150 UG, UNK
     Route: 065
  7. TASIGNA [Suspect]
     Active Substance: NILOTINIB
     Dosage: UNK MG, UNK
     Route: 065
  8. TASIGNA [Suspect]
     Active Substance: NILOTINIB
     Dosage: 800 MG, UNK
     Route: 065
  9. TIROXIN [Concomitant]
     Dosage: 100 UG, UNK
     Route: 065
  10. CIPROFIBRATE [Concomitant]
     Active Substance: CIPROFIBRATE
     Indication: BLOOD TRIGLYCERIDES INCREASED
     Dosage: 100 MG, UNK
     Route: 065
     Dates: start: 2015

REACTIONS (3)
  - Dysentery [Not Recovered/Not Resolved]
  - Chronic myeloid leukaemia [Unknown]
  - Stress [Unknown]
